FAERS Safety Report 17032907 (Version 1)
Quarter: 2019Q4

REPORT INFORMATION
  Report Type: Spontaneous
  Country: US (occurrence: US)
  Receive Date: 20191114
  Receipt Date: 20191114
  Transmission Date: 20200122
  Serious: No
  Sender: FDA-Public Use
  Company Number: US-BAUSCH-BL-2019-058201

PATIENT
  Sex: Female

DRUGS (2)
  1. TRULANCE [Suspect]
     Active Substance: PLECANATIDE
     Indication: PRODUCT USED FOR UNKNOWN INDICATION
     Dosage: THERAPY DURATION FROM START DATE: 2 MONTHS, FREQUENCY: DAILY
     Route: 065
     Dates: start: 201901, end: 20190117
  2. TRULANCE [Suspect]
     Active Substance: PLECANATIDE
     Dosage: NIGHT
     Route: 065
     Dates: start: 20190121

REACTIONS (2)
  - Therapeutic product effect incomplete [Unknown]
  - Therapy cessation [Unknown]

NARRATIVE: CASE EVENT DATE: 20190117
